FAERS Safety Report 25731291 (Version 2)
Quarter: 2025Q3

REPORT INFORMATION
  Report Type: Report from Study
  Country: EG (occurrence: EG)
  Receive Date: 20250827
  Receipt Date: 20250829
  Transmission Date: 20251020
  Serious: Yes (Life-Threatening, Hospitalization, Other)
  Sender: NOVARTIS
  Company Number: EG-002147023-NVSC2025EG087975

PATIENT
  Sex: Male
  Weight: 70 kg

DRUGS (4)
  1. LEQVIO [Suspect]
     Active Substance: INCLISIRAN SODIUM
     Indication: Hypercholesterolaemia
     Route: 058
     Dates: start: 2023
  2. RIVAROXABAN [Concomitant]
     Active Substance: RIVAROXABAN
     Indication: Immunodeficiency
     Dosage: UNK, QD (TABLET)
     Route: 048
     Dates: start: 202505
  3. HYDROXOCOBALAMIN [Concomitant]
     Active Substance: HYDROXOCOBALAMIN
     Indication: Immunodeficiency
     Dosage: UNK, BIW (AMPOULE) (STARTED 2 WEEKS AGO)
     Route: 030
  4. PLAVIX [Concomitant]
     Active Substance: CLOPIDOGREL BISULFATE
     Indication: Cardiac failure
     Dosage: UNK, QD (TABLET)
     Route: 048
     Dates: start: 2021, end: 202505

REACTIONS (30)
  - Loss of consciousness [Recovered/Resolved]
  - Dyspnoea [Recovered/Resolved]
  - Oxygen saturation decreased [Recovered/Resolved]
  - Hypotension [Not Recovered/Not Resolved]
  - Eye oedema [Recovered/Resolved]
  - Ophthalmic vascular thrombosis [Recovered/Resolved]
  - Dizziness [Recovered/Resolved]
  - Ophthalmic vascular thrombosis [Recovered/Resolved]
  - Blindness unilateral [Recovered/Resolved]
  - Immune system disorder [Not Recovered/Not Resolved]
  - Ophthalmic vascular thrombosis [Recovered/Resolved]
  - Gene mutation [Not Recovered/Not Resolved]
  - Blood homocysteine increased [Not Recovered/Not Resolved]
  - Liver function test decreased [Not Recovered/Not Resolved]
  - Retinal detachment [Not Recovered/Not Resolved]
  - Blindness transient [Recovering/Resolving]
  - Eye irritation [Not Recovered/Not Resolved]
  - Haemolysis [Not Recovered/Not Resolved]
  - Mental disorder [Recovered/Resolved]
  - Eye pain [Not Recovered/Not Resolved]
  - Fatigue [Recovered/Resolved]
  - Injection site warmth [Recovered/Resolved]
  - Ocular hyperaemia [Recovering/Resolving]
  - Injection site erythema [Recovered/Resolved]
  - Off label use [Unknown]
  - Dry mouth [Recovered/Resolved]
  - Dry throat [Recovered/Resolved]
  - Urinary tract infection [Not Recovered/Not Resolved]
  - Micturition urgency [Not Recovered/Not Resolved]
  - Fatigue [Not Recovered/Not Resolved]

NARRATIVE: CASE EVENT DATE: 20230101
